FAERS Safety Report 10439045 (Version 1)
Quarter: 2014Q3

REPORT INFORMATION
  Report Type: Report from Study
  Country: US (occurrence: US)
  Receive Date: 20140908
  Receipt Date: 20140908
  Transmission Date: 20150326
  Serious: Yes (Hospitalization)
  Sender: FDA-Public Use
  Company Number: US-EISAI INC-E2B_00000000010126

PATIENT
  Age: 65 Year
  Sex: Female
  Weight: 121.6 kg

DRUGS (1)
  1. LORCASERIN HYDROCHLORIDE [Suspect]
     Active Substance: LORCASERIN HYDROCHLORIDE
     Indication: WEIGHT CONTROL
     Dosage: DOUBLE-BLIND
     Route: 048
     Dates: start: 20140715, end: 201407

REACTIONS (1)
  - Toxic nodular goitre [Recovered/Resolved]

NARRATIVE: CASE EVENT DATE: 20140724
